FAERS Safety Report 15015442 (Version 1)
Quarter: 2018Q2

REPORT INFORMATION
  Report Type: Spontaneous
  Country: US (occurrence: US)
  Receive Date: 20180530
  Receipt Date: 20180530
  Transmission Date: 20180711
  Serious: Yes (Hospitalization, Other)
  Sender: FDA-Public Use
  Company Number: None

PATIENT
  Age: 67 Year

DRUGS (1)
  1. COLCHICINE. [Suspect]
     Active Substance: COLCHICINE
     Indication: GOUT

REACTIONS (5)
  - Loss of consciousness [None]
  - Thrombocytopenia [None]
  - Flushing [None]
  - Drug eruption [None]
  - Nausea [None]

NARRATIVE: CASE EVENT DATE: 20171114
